FAERS Safety Report 7392941-0 (Version None)
Quarter: 2011Q1

REPORT INFORMATION
  Report Type: 
  Country: None (occurrence: None)
  Receive Date: 20110330
  Receipt Date: 20110330
  Transmission Date: 20110831
  Serious: Yes (Other)
  Sender: FDA-Public Use
  Company Number: None

PATIENT
  Age: 62 Year
  Sex: Female
  Weight: 55.3388 kg

DRUGS (2)
  1. OLAY PROX WRINKLE TREATMENT N/A OLAY [Suspect]
     Indication: SKIN WRINKLING
     Dosage: PER INSTRUCTIONS ONE TIME AT NIGHT CUTANEOUS
     Route: 003
     Dates: start: 20110326, end: 20110326
  2. OLAY PROX DEEP WRINKLE TREATMENT N/A OLAY [Suspect]
     Indication: SKIN WRINKLING
     Dosage: PER INSTRUCTIONS ONE TIME AT NIGHT CUTANEOUS
     Route: 003
     Dates: start: 20110326, end: 20110326

REACTIONS (5)
  - EYELID OEDEMA [None]
  - BLISTER [None]
  - SKIN EXFOLIATION [None]
  - ERYTHEMA [None]
  - SWELLING FACE [None]
